FAERS Safety Report 12770080 (Version 8)
Quarter: 2017Q2

REPORT INFORMATION
  Report Type: Spontaneous
  Country: US (occurrence: US)
  Receive Date: 20160922
  Receipt Date: 20170508
  Transmission Date: 20170830
  Serious: Yes (Death, Hospitalization)
  Sender: FDA-Public Use
  Company Number: PHEH2016US024204

PATIENT
  Age: 74 Year
  Sex: Male

DRUGS (2)
  1. AFINITOR [Suspect]
     Active Substance: EVEROLIMUS
     Indication: RENAL NEOPLASM
     Dosage: 2.5 MG, QD
     Route: 048
  2. LENVATINIB [Suspect]
     Active Substance: LENVATINIB
     Indication: RENAL NEOPLASM
     Dosage: 10 MG, QD
     Route: 048
     Dates: start: 20160824, end: 20170127

REACTIONS (9)
  - Pulmonary embolism [Recovering/Resolving]
  - Fatigue [Unknown]
  - Death [Fatal]
  - Paraesthesia [Unknown]
  - Headache [Recovered/Resolved]
  - Acne [Not Recovered/Not Resolved]
  - Pneumonitis [Not Recovered/Not Resolved]
  - Dry skin [Unknown]
  - Hyperlipidaemia [Not Recovered/Not Resolved]

NARRATIVE: CASE EVENT DATE: 201609
